FAERS Safety Report 7729435-6 (Version None)
Quarter: 2011Q3

REPORT INFORMATION
  Report Type: 
  Country: None (occurrence: None)
  Receive Date: 20110906
  Receipt Date: 20110904
  Transmission Date: 20111222
  Serious: Yes (Other)
  Sender: FDA-Public Use
  Company Number: US-JNJFOC-20110900427

PATIENT
  Sex: Female

DRUGS (3)
  1. LEVAQUIN [Suspect]
     Route: 065
     Dates: start: 19990101
  2. LEVAQUIN [Suspect]
     Indication: PRODUCT USED FOR UNKNOWN INDICATION
     Route: 065
     Dates: start: 20060801
  3. LEVAQUIN [Suspect]
     Route: 065
     Dates: start: 20060301

REACTIONS (3)
  - MENISCUS LESION [None]
  - TENDON RUPTURE [None]
  - LIGAMENT DISORDER [None]
